FAERS Safety Report 17418726 (Version 1)
Quarter: 2020Q1

REPORT INFORMATION
  Report Type: Spontaneous
  Country: US (occurrence: US)
  Receive Date: 20200214
  Receipt Date: 20200214
  Transmission Date: 20200409
  Serious: No
  Sender: FDA-Public Use
  Company Number: US-BRISTOL-MYERS SQUIBB COMPANY-BMS-2019-126386

PATIENT
  Sex: Male

DRUGS (1)
  1. OPDIVO [Suspect]
     Active Substance: NIVOLUMAB
     Indication: ECCRINE CARCINOMA
     Dosage: 480 MILLIGRAM, Q4WK
     Route: 042

REACTIONS (3)
  - Toxicity to various agents [Unknown]
  - Product dose omission [Unknown]
  - Intentional product use issue [Unknown]
